FAERS Safety Report 20737390 (Version 1)
Quarter: 2022Q2

REPORT INFORMATION
  Report Type: Spontaneous
  Country: US (occurrence: None)
  Receive Date: 20220421
  Receipt Date: 20220421
  Transmission Date: 20220721
  Serious: Yes (Other)
  Sender: FDA-Public Use
  Company Number: 2022A124895

PATIENT
  Age: 20639 Day
  Sex: Male
  Weight: 99.8 kg

DRUGS (14)
  1. BYDUREON BCISE [Suspect]
     Active Substance: EXENATIDE
     Indication: Diabetes mellitus
     Route: 058
     Dates: start: 20220323
  2. OMEPRAZOLE [Suspect]
     Active Substance: OMEPRAZOLE
     Route: 048
  3. LISINOPRIL [Concomitant]
     Active Substance: LISINOPRIL
  4. VITAMIN C [Concomitant]
     Active Substance: ASCORBIC ACID
     Route: 048
  5. VITAMINS [Concomitant]
     Active Substance: VITAMINS
     Dosage: 1 CAPSULE ONCE A DAY
     Route: 048
  6. COENZYME Q10 [Concomitant]
     Active Substance: DIETARY SUPPLEMENT\UBIDECARENONE
  7. DEXCOM [Concomitant]
  8. TESTOSTERONE CYPIONATE [Concomitant]
     Active Substance: TESTOSTERONE CYPIONATE
     Dosage: 100MG/ML ONCE A WEEK
     Route: 030
  9. SILDENAFIL [Concomitant]
     Active Substance: SILDENAFIL
     Dosage: 150 MG TROCHE 1/2 TROCHE ORAL PM, ONE HOUR PRIOR TO SEXUAL ACTIVITY
  10. PIOGLITAZONE [Concomitant]
     Active Substance: PIOGLITAZONE
     Route: 048
  11. ATORVASTATIN [Concomitant]
     Active Substance: ATORVASTATIN
     Route: 048
  12. SYNGARDY XR [Concomitant]
     Dosage: 1 TAB ONCE A DAY
     Route: 048
  13. ZITHROMAX [Concomitant]
     Active Substance: AZITHROMYCIN DIHYDRATE
     Dosage: 2 TABLETS ONCE A DAY
     Route: 048
  14. GONADOTROPHIN, CHORIONIC [Concomitant]
     Active Substance: GONADOTROPHIN, CHORIONIC
     Dosage: 500 U WEEKLY
     Route: 058

REACTIONS (9)
  - Testicular failure [Unknown]
  - Essential hypertension [Unknown]
  - Acquired mixed hyperlipidaemia [Unknown]
  - Fatigue [Unknown]
  - Drug dose omission by device [Recovered/Resolved]
  - Incorrect dose administered by device [Unknown]
  - Device use issue [Unknown]
  - Device leakage [Unknown]
  - Device delivery system issue [Unknown]

NARRATIVE: CASE EVENT DATE: 20220323
